FAERS Safety Report 9411763 (Version 2)
Quarter: 2013Q3

REPORT INFORMATION
  Report Type: Spontaneous
  Country: US (occurrence: US)
  Receive Date: 20130722
  Receipt Date: 20130830
  Transmission Date: 20140515
  Serious: No
  Sender: FDA-Public Use
  Company Number: US-PFIZER INC-2013213270

PATIENT
  Age: 53 Year
  Sex: Female
  Weight: 58.96 kg

DRUGS (2)
  1. PRISTIQ [Suspect]
     Indication: ANXIETY
     Dosage: 50 MG, DAILY
     Dates: start: 201204
  2. PRISTIQ [Suspect]
     Indication: DEPRESSION
     Dosage: 100 MG, 1X/DAY
     Dates: end: 2013

REACTIONS (6)
  - Drug withdrawal syndrome [Not Recovered/Not Resolved]
  - Formication [Unknown]
  - Headache [Unknown]
  - Burning sensation [Unknown]
  - Malaise [Not Recovered/Not Resolved]
  - Off label use [Unknown]
